FAERS Safety Report 14841196 (Version 1)
Quarter: 2018Q2

REPORT INFORMATION
  Report Type: Spontaneous
  Country: AE (occurrence: AE)
  Receive Date: 20180503
  Receipt Date: 20180503
  Transmission Date: 20180711
  Serious: Yes (Hospitalization)
  Sender: FDA-Public Use
  Company Number: AE-CHARTWELL PHARMA-2047086

PATIENT
  Age: 38 Year
  Sex: Male

DRUGS (4)
  1. DEXAMETHASONE. [Concomitant]
     Active Substance: DEXAMETHASONE
  2. CEFTRIAXONE. [Concomitant]
     Active Substance: CEFTRIAXONE
  3. METRONIDAZOLE. [Suspect]
     Active Substance: METRONIDAZOLE
     Indication: BRAIN ABSCESS
     Route: 042
  4. VANCOMYCIN HYDROCHLORIDE. [Concomitant]
     Active Substance: VANCOMYCIN HYDROCHLORIDE

REACTIONS (1)
  - Neurotoxicity [Recovered/Resolved]
